FAERS Safety Report 7860159-0 (Version None)
Quarter: 2011Q4

REPORT INFORMATION
  Report Type: 
  Country: None (occurrence: None)
  Receive Date: 20111027
  Receipt Date: 20111019
  Transmission Date: 20120403
  Serious: Yes (Death, Life-Threatening, Hospitalization)
  Sender: FDA-Public Use
  Company Number: DE-SANOFI-AVENTIS-2011SA070333

PATIENT
  Age: 69 Year
  Sex: Male
  Weight: 48 kg

DRUGS (4)
  1. FLUOROURACIL [Suspect]
     Route: 040
     Dates: start: 20110728, end: 20110728
  2. FLUOROURACIL [Suspect]
     Route: 042
     Dates: start: 20110728, end: 20110728
  3. OXALIPLATIN [Suspect]
     Route: 042
     Dates: start: 20110728, end: 20110728
  4. LEUCOVORIN CALCIUM [Suspect]
     Route: 042
     Dates: start: 20110728, end: 20110729

REACTIONS (6)
  - ALANINE AMINOTRANSFERASE INCREASED [None]
  - RESPIRATORY FAILURE [None]
  - THROMBOCYTOPENIA [None]
  - HYPOTENSION [None]
  - LIVER DISORDER [None]
  - ASPARTATE AMINOTRANSFERASE INCREASED [None]
